FAERS Safety Report 14029226 (Version 1)
Quarter: 2017Q3

REPORT INFORMATION
  Report Type: Spontaneous
  Country: US (occurrence: US)
  Receive Date: 20170930
  Receipt Date: 20170930
  Transmission Date: 20171128
  Serious: No
  Sender: FDA-Public Use
  Company Number: US-SA-2017SA085238

PATIENT
  Age: 56 Year
  Sex: Female

DRUGS (8)
  1. AUBAGIO [Suspect]
     Active Substance: TERIFLUNOMIDE
     Indication: MULTIPLE SCLEROSIS
     Route: 048
     Dates: start: 201703
  2. TECFIDERA [Concomitant]
     Active Substance: DIMETHYL FUMARATE
  3. LUTEIN [Concomitant]
     Active Substance: LUTEIN
     Dosage: DOSE: 15-0.7 MG
     Dates: start: 20160516
  4. ASPIRIN. [Concomitant]
     Active Substance: ASPIRIN
     Dosage: FORM: CHW
     Dates: start: 20160516
  5. COENZYME Q10 [Concomitant]
     Active Substance: UBIDECARENONE
     Dates: start: 20160610
  6. FISH OIL [Concomitant]
     Active Substance: FISH OIL
     Dates: start: 20160516
  7. ZOLPIDEM [Concomitant]
     Active Substance: ZOLPIDEM\ZOLPIDEM TARTRATE
     Dates: start: 20160610
  8. VITAMIN D/CALCIUM [Concomitant]
     Dates: start: 20160516

REACTIONS (1)
  - Paraesthesia [Not Recovered/Not Resolved]

NARRATIVE: CASE EVENT DATE: 201703
